FAERS Safety Report 6641869-X (Version None)
Quarter: 2010Q1

REPORT INFORMATION
  Report Type: 
  Country: None (occurrence: None)
  Receive Date: 20100319
  Receipt Date: 20100311
  Transmission Date: 20100710
  Serious: Yes (Congenital Anomaly, Other)
  Sender: FDA-Public Use
  Company Number: BR-BAYER-201012284LA

PATIENT
  Age: 0 Hour
  Sex: Female
  Weight: 5 kg

DRUGS (1)
  1. YASMIN [Suspect]
     Indication: ORAL CONTRACEPTION
     Route: 048
     Dates: start: 20071101, end: 20090401

REACTIONS (3)
  - LIMB MALFORMATION [None]
  - PREMATURE BABY [None]
  - SMALL FOR DATES BABY [None]
